FAERS Safety Report 9560393 (Version 2)
Quarter: 2013Q4

REPORT INFORMATION
  Report Type: Report from Study
  Country: CA (occurrence: CA)
  Receive Date: 20130927
  Receipt Date: 20131120
  Transmission Date: 20140711
  Serious: Yes (Other)
  Sender: FDA-Public Use
  Company Number: CA-JNJFOC-20130914880

PATIENT
  Age: 51 Year
  Sex: Male
  Weight: 129.28 kg

DRUGS (1)
  1. STELARA [Suspect]
     Indication: PSORIASIS
     Dosage: STOPPED IN 2013, 1.0 ML SYRINGE
     Route: 058
     Dates: start: 201211, end: 201306

REACTIONS (1)
  - Hodgkin^s disease [Unknown]
